FAERS Safety Report 5303512-1 (Version None)
Quarter: 2007Q2

REPORT INFORMATION
  Report Type: 
  Country: None (occurrence: None)
  Receive Date: 20070420
  Receipt Date: 20070412
  Transmission Date: 20071010
  Serious: Yes (Other)
  Sender: FDA-Public Use
  Company Number: FR-PFIZER INC-2007030019

PATIENT
  Age: 82 Year
  Sex: Female

DRUGS (3)
  1. TAHOR [Suspect]
  2. TRIMETAZIDINE DIHYDROCHLORIDE [Concomitant]
  3. LOSARTAN POSTASSIUM W/HYDROCHLOROTHIAZIDE [Concomitant]

REACTIONS (1)
  - TENDON RUPTURE [None]
